FAERS Safety Report 9698010 (Version 2)
Quarter: 2014Q1

REPORT INFORMATION
  Report Type: Spontaneous
  Country: BR (occurrence: BR)
  Receive Date: 20131120
  Receipt Date: 20140228
  Transmission Date: 20141002
  Serious: Yes (Other)
  Sender: FDA-Public Use
  Company Number: BR-SA-2013SA116115

PATIENT
  Age: 60 Year
  Sex: Male
  Weight: 71 kg

DRUGS (9)
  1. LANTUS [Suspect]
     Indication: TYPE 1 DIABETES MELLITUS
     Dosage: 22 IU IN THE MORNING AND 8 IU AT NIGHT
     Route: 058
     Dates: start: 2005
  2. NOVORAPID [Concomitant]
     Indication: TYPE 1 DIABETES MELLITUS
     Route: 058
  3. EZETIMIBE/SIMVASTATIN [Concomitant]
     Indication: CARDIAC DISORDER
     Dosage: 10/20 MG STRENGTH
     Route: 048
     Dates: start: 2008
  4. CLOPIDOGREL [Concomitant]
     Dosage: STRENGTH: 75 MG
     Route: 048
     Dates: start: 2008
  5. AAS [Concomitant]
     Indication: CARDIAC DISORDER
     Route: 048
     Dates: start: 2008
  6. LOSARTAN [Concomitant]
     Indication: CARDIAC DISORDER
     Route: 048
     Dates: start: 2008
  7. ATENOLOL [Concomitant]
     Indication: CARDIAC DISORDER
     Dosage: STRENGTH: 50 MG
     Route: 048
     Dates: start: 2008
  8. CLIKSTAR [Concomitant]
     Indication: DEVICE THERAPY
  9. HUMALOG [Concomitant]
     Dosage: STARTED 8 YEARS AGO.?DOSE:ACCORDING TO GLYCAEMIA
     Dates: start: 2005

REACTIONS (6)
  - Infarction [Recovered/Resolved]
  - Back pain [Recovered/Resolved]
  - Cardiomyopathy [Recovered/Resolved]
  - Peyronie^s disease [Recovered/Resolved]
  - Palmar-plantar erythrodysaesthesia syndrome [Recovered/Resolved]
  - Off label use [Unknown]
